FAERS Safety Report 16173364 (Version 1)
Quarter: 2019Q2

REPORT INFORMATION
  Report Type: Spontaneous
  Country: US (occurrence: US)
  Receive Date: 20190408
  Receipt Date: 20190408
  Transmission Date: 20190711
  Serious: Yes (Other)
  Sender: FDA-Public Use
  Company Number: None

PATIENT
  Age: 59 Year
  Sex: Female
  Weight: 85.5 kg

DRUGS (4)
  1. BUPRENORPHINE AND NALOXONE 8MG/2MG [Concomitant]
     Active Substance: BUPRENORPHINE\NALOXONE
     Indication: DRUG DEPENDENCE
     Dosage: ?          QUANTITY:1 FILM;?
     Route: 060
     Dates: start: 20190312, end: 20190407
  2. SUBOXONE [Concomitant]
     Active Substance: BUPRENORPHINE HYDROCHLORIDE\NALOXONE HYDROCHLORIDE
  3. LISINOPRIL. [Concomitant]
     Active Substance: LISINOPRIL
  4. ZESTRIL [Concomitant]
     Active Substance: LISINOPRIL

REACTIONS (9)
  - Product quality issue [None]
  - Headache [None]
  - Product solubility abnormal [None]
  - Sneezing [None]
  - Product taste abnormal [None]
  - Drug ineffective [None]
  - Myalgia [None]
  - Product substitution issue [None]
  - Suspected counterfeit product [None]
